FAERS Safety Report 5634712-9 (Version None)
Quarter: 2008Q1

REPORT INFORMATION
  Report Type: 
  Country: None (occurrence: None)
  Receive Date: 20080221
  Receipt Date: 20080221
  Transmission Date: 20080703
  Serious: Yes (Hospitalization)
  Sender: FDA-Public Use
  Company Number: None

PATIENT
  Age: 85 Year
  Sex: Male

DRUGS (1)
  1. SALSALATE [Suspect]
     Indication: PAIN
     Dosage: 750MG BID  PO
     Route: 048
     Dates: start: 20060504, end: 20071027

REACTIONS (2)
  - GASTRIC HAEMORRHAGE [None]
  - HYPOTENSION [None]
